FAERS Safety Report 24173370 (Version 1)
Quarter: 2024Q3

REPORT INFORMATION
  Report Type: Report from Study
  Country: US (occurrence: None)
  Receive Date: 20240805
  Receipt Date: 20240805
  Transmission Date: 20241017
  Serious: Yes (Hospitalization, Disabling, Other)
  Sender: ASTRAZENECA
  Company Number: 2023A270424

PATIENT
  Age: 21075 Day
  Sex: Female

DRUGS (1)
  1. SYMBICORT [Suspect]
     Active Substance: BUDESONIDE\FORMOTEROL FUMARATE DIHYDRATE
     Dosage: DOSE AND FREQUENCY UNKNOWN UNKNOWN
     Route: 055

REACTIONS (2)
  - Cerebrovascular accident [Recovering/Resolving]
  - Pneumonia [Recovered/Resolved]

NARRATIVE: CASE EVENT DATE: 20230826
